FAERS Safety Report 6757192-9 (Version None)
Quarter: 2010Q2

REPORT INFORMATION
  Report Type: 
  Country: None (occurrence: None)
  Receive Date: 20100607
  Receipt Date: 20100528
  Transmission Date: 20101027
  Serious: Yes (Hospitalization)
  Sender: FDA-Public Use
  Company Number: US-BIOGENIDEC-2009BI022215

PATIENT
  Age: 55 Year
  Sex: Female

DRUGS (2)
  1. AVONEX [Suspect]
     Indication: MULTIPLE SCLEROSIS
     Route: 030
     Dates: start: 20021001
  2. AVONEX [Suspect]
     Route: 030

REACTIONS (11)
  - ABDOMINAL DISCOMFORT [None]
  - CYSTITIS [None]
  - DEVICE FAILURE [None]
  - INTERVERTEBRAL DISC DEGENERATION [None]
  - MEMORY IMPAIRMENT [None]
  - MULTIPLE SCLEROSIS RELAPSE [None]
  - OEDEMA PERIPHERAL [None]
  - PAIN [None]
  - PAIN IN EXTREMITY [None]
  - SCOLIOSIS [None]
  - URINARY INCONTINENCE [None]
